FAERS Safety Report 13105939 (Version 1)
Quarter: 2017Q1

REPORT INFORMATION
  Report Type: Spontaneous
  Country: GR (occurrence: GR)
  Receive Date: 20170111
  Receipt Date: 20170111
  Transmission Date: 20170428
  Serious: Yes (Other)
  Sender: FDA-Public Use
  Company Number: GR-BAYER-2017-005040

PATIENT
  Age: 61 Year
  Sex: Male

DRUGS (2)
  1. CIPROXIN 500 MG [Suspect]
     Active Substance: CIPROFLOXACIN
     Indication: PROSTATIC OPERATION
     Dosage: 500 MG, BID
     Route: 048
     Dates: start: 20161014, end: 20161102
  2. CIPROXIN 500 MG [Suspect]
     Active Substance: CIPROFLOXACIN
     Indication: INFLAMMATION
     Dosage: 500 MG, BID
     Route: 048
     Dates: start: 201612, end: 201612

REACTIONS (7)
  - Vomiting [Recovered/Resolved]
  - Tendon pain [None]
  - Limb mass [None]
  - Abdominal discomfort [Recovered/Resolved]
  - Muscle injury [None]
  - Dizziness [Recovered/Resolved]
  - Peripheral swelling [None]

NARRATIVE: CASE EVENT DATE: 20161110
